FAERS Safety Report 10150054 (Version 1)
Quarter: 2014Q2

REPORT INFORMATION
  Report Type: Spontaneous
  Country: US (occurrence: US)
  Receive Date: 20140502
  Receipt Date: 20140502
  Transmission Date: 20141212
  Serious: Yes (Other)
  Sender: FDA-Public Use
  Company Number: US-PFIZER INC-2014118342

PATIENT
  Sex: Male

DRUGS (2)
  1. GLIPIZIDE [Suspect]
     Dosage: UNK
  2. INSULIN [Suspect]
     Dosage: UNK

REACTIONS (1)
  - Glycosylated haemoglobin increased [Unknown]
